FAERS Safety Report 10237276 (Version 3)
Quarter: 2015Q3

REPORT INFORMATION
  Report Type: Spontaneous
  Country: US (occurrence: US)
  Receive Date: 20140613
  Receipt Date: 20150714
  Transmission Date: 20151125
  Serious: No
  Sender: FDA-Public Use
  Company Number: US-PFIZER INC-2014159945

PATIENT
  Age: 46 Year
  Sex: Female

DRUGS (1)
  1. PREMARIN [Suspect]
     Active Substance: ESTROGENS, CONJUGATED
     Indication: HORMONE REPLACEMENT THERAPY
     Dosage: 1.25 UNK, 1X/DAY
     Dates: start: 1992

REACTIONS (5)
  - Night sweats [Recovered/Resolved]
  - Hormone level abnormal [Recovered/Resolved]
  - Mood swings [Recovered/Resolved]
  - Irritability [Recovered/Resolved]
  - Emotional disorder [Recovered/Resolved]
